FAERS Safety Report 14875023 (Version 1)
Quarter: 2018Q2

REPORT INFORMATION
  Report Type: Spontaneous
  Country: US (occurrence: US)
  Receive Date: 20180510
  Receipt Date: 20180510
  Transmission Date: 20180711
  Serious: Yes (Hospitalization)
  Sender: FDA-Public Use
  Company Number: US-ENDO PHARMACEUTICALS INC-2018-035987

PATIENT
  Age: 69 Year
  Sex: Female

DRUGS (5)
  1. AMANTADINE HYDROCHLORIDE SYRUP 50MG/5ML [Suspect]
     Active Substance: AMANTADINE HYDROCHLORIDE
     Indication: PRODUCT USED FOR UNKNOWN INDICATION
     Dosage: UNK
  2. BETHANECHOL CHLORIDE. [Suspect]
     Active Substance: BETHANECHOL CHLORIDE
     Dosage: UNK
  3. NORTHERA [Suspect]
     Active Substance: DROXIDOPA
     Indication: AUTONOMIC NEUROPATHY
     Dosage: 100 MG, TID
     Route: 048
     Dates: start: 20180127
  4. NORTHERA [Suspect]
     Active Substance: DROXIDOPA
     Indication: ORTHOSTATIC HYPOTENSION
     Dosage: 200 MG, TID
     Route: 048
  5. NORTHERA [Suspect]
     Active Substance: DROXIDOPA
     Dosage: 100 MG, TID
     Route: 048

REACTIONS (5)
  - Abnormal behaviour [Not Recovered/Not Resolved]
  - Hallucination, visual [Not Recovered/Not Resolved]
  - Memory impairment [Not Recovered/Not Resolved]
  - Hallucination, auditory [Not Recovered/Not Resolved]
  - Fall [Unknown]

NARRATIVE: CASE EVENT DATE: 20180228
